FAERS Safety Report 22311215 (Version 3)
Quarter: 2024Q1

REPORT INFORMATION
  Report Type: Spontaneous
  Country: US (occurrence: US)
  Receive Date: 20230511
  Receipt Date: 20240311
  Transmission Date: 20240409
  Serious: Yes (Hospitalization, Disabling, Other)
  Sender: FDA-Public Use
  Company Number: US-MIRATI-MT2023PM03715

PATIENT

DRUGS (6)
  1. KRAZATI [Suspect]
     Active Substance: ADAGRASIB
     Indication: Lung neoplasm malignant
     Dosage: 600 MG, BID
     Route: 048
     Dates: start: 20230309, end: 20230319
  2. KRAZATI [Suspect]
     Active Substance: ADAGRASIB
     Dosage: 200 MG, QD
     Route: 048
     Dates: start: 20230420, end: 20230425
  3. KRAZATI [Suspect]
     Active Substance: ADAGRASIB
     Dosage: 200 MG, BID
     Route: 048
     Dates: start: 20230425, end: 20230430
  4. KRAZATI [Suspect]
     Active Substance: ADAGRASIB
     Dosage: 200 MG, 2 TABLETS IN THE MORNING AND 1 TABLET AT NIGHT
     Route: 048
     Dates: start: 20230430
  5. KRAZATI [Suspect]
     Active Substance: ADAGRASIB
     Dosage: 200 MG, 1 TABLET IN AM AND 2 TABLETS IN PM
     Route: 048
  6. CIPRO [Suspect]
     Active Substance: CIPROFLOXACIN HYDROCHLORIDE
     Indication: Urinary tract infection

REACTIONS (17)
  - Dehydration [Unknown]
  - Acute kidney injury [Unknown]
  - Fatigue [Recovered/Resolved]
  - Peripheral swelling [Recovered/Resolved]
  - Nausea [Recovered/Resolved]
  - Urinary tract infection [Recovered/Resolved]
  - Back pain [Not Recovered/Not Resolved]
  - Asthenia [Unknown]
  - Nausea [Recovering/Resolving]
  - Oedema [Not Recovered/Not Resolved]
  - Myalgia [Not Recovered/Not Resolved]
  - Bone pain [Not Recovered/Not Resolved]
  - Decreased appetite [Not Recovered/Not Resolved]
  - Dyspnoea [Not Recovered/Not Resolved]
  - Blood creatinine increased [Unknown]
  - Fatigue [Unknown]
  - Nausea [Not Recovered/Not Resolved]

NARRATIVE: CASE EVENT DATE: 20230501
